FAERS Safety Report 17855475 (Version 3)
Quarter: 2020Q2

REPORT INFORMATION
  Report Type: Spontaneous
  Country: US (occurrence: US)
  Receive Date: 20200603
  Receipt Date: 20200625
  Transmission Date: 20200714
  Serious: Yes (Other)
  Sender: FDA-Public Use
  Company Number: US-VERTEX PHARMACEUTICALS-2020-011450

PATIENT
  Age: 45 Year
  Sex: Female

DRUGS (5)
  1. TRIKAFTA [Suspect]
     Active Substance: ELEXACAFTOR\IVACAFTOR\TEZACAFTOR
     Indication: CYSTIC FIBROSIS
     Dosage: 100 MG ELEXACAFTOR/ 50 MG TEZACAFTOR/ 75 MG IVACAFTOR; 150MG IVACAFTOR) FREQUENCY UNKNOWN
     Route: 048
     Dates: start: 20200318, end: 2020
  2. IBUPROFEN. [Concomitant]
     Active Substance: IBUPROFEN
  3. TRIKAFTA [Suspect]
     Active Substance: ELEXACAFTOR\IVACAFTOR\TEZACAFTOR
     Dosage: 1 ORANGE TAB (100 MG ELEXA/ 50 MG TEZA/ 75 MG IVACA) AM; 1/2 TAB (75 MG IVA)
     Route: 048
     Dates: start: 202005
  4. OXYCODONE [Concomitant]
     Active Substance: OXYCODONE
  5. BENADRYL [Concomitant]
     Active Substance: DIPHENHYDRAMINE HYDROCHLORIDE

REACTIONS (4)
  - Pancreatic disorder [Recovering/Resolving]
  - Abdominal pain [Not Recovered/Not Resolved]
  - Oral surgery [Unknown]
  - Gastric disorder [Recovering/Resolving]

NARRATIVE: CASE EVENT DATE: 202005
